FAERS Safety Report 16553586 (Version 3)
Quarter: 2019Q4

REPORT INFORMATION
  Report Type: Spontaneous
  Country: JP (occurrence: JP)
  Receive Date: 20190710
  Receipt Date: 20191206
  Transmission Date: 20200122
  Serious: Yes (Hospitalization)
  Sender: FDA-Public Use
  Company Number: JP-EISAI MEDICAL RESEARCH-EC-2019-058266

PATIENT
  Age: 67 Year
  Sex: Male
  Weight: 61 kg

DRUGS (6)
  1. PORTOLAC [Concomitant]
     Active Substance: LACTITOL
     Indication: HEPATIC ENCEPHALOPATHY
     Dosage: DOSE AND FREQUENCY NOT PROVIDED
     Dates: start: 20190618
  2. LENVIMA [Suspect]
     Active Substance: LENVATINIB
     Indication: HEPATOCELLULAR CARCINOMA
     Route: 048
     Dates: start: 20190517, end: 20190618
  3. LENVIMA [Suspect]
     Active Substance: LENVATINIB
     Route: 048
     Dates: start: 20190619, end: 20190717
  4. TAKECAB [Concomitant]
     Active Substance: VONOPRAZAN FUMURATE
     Indication: PRODUCT USED FOR UNKNOWN INDICATION
     Dosage: DOSE AND FREQUENCY NOT PROVIDED
  5. LENVIMA [Suspect]
     Active Substance: LENVATINIB
     Dosage: 4 MG/DAY (MON-WED), 8 MG/DAY (THU-SUN)
     Route: 048
     Dates: start: 2019
  6. LENVIMA [Suspect]
     Active Substance: LENVATINIB
     Route: 048
     Dates: start: 20190718, end: 2019

REACTIONS (3)
  - Decreased appetite [Recovered/Resolved]
  - Hepatic encephalopathy [Recovered/Resolved]
  - Weight decreased [Recovered/Resolved]

NARRATIVE: CASE EVENT DATE: 20190618
